FAERS Safety Report 13303107 (Version 2)
Quarter: 2017Q2

REPORT INFORMATION
  Report Type: Spontaneous
  Country: US (occurrence: US)
  Receive Date: 20170307
  Receipt Date: 20170405
  Transmission Date: 20170830
  Serious: Yes (Hospitalization, Other)
  Sender: FDA-Public Use
  Company Number: US-009507513-1703USA001702

PATIENT
  Age: 60 Year
  Sex: Female

DRUGS (16)
  1. FUROSEMIDE. [Concomitant]
     Active Substance: FUROSEMIDE
     Dosage: UNK
     Route: 048
  2. HYDROXYCHLOROQUINE SULFATE. [Concomitant]
     Active Substance: HYDROXYCHLOROQUINE SULFATE
     Dosage: UNK
  3. OMEPRAZOLE. [Concomitant]
     Active Substance: OMEPRAZOLE
     Dosage: UNK
  4. ROSUVASTATIN. [Concomitant]
     Active Substance: ROSUVASTATIN
     Dosage: UNK
  5. SYMBICORT [Concomitant]
     Active Substance: BUDESONIDE\FORMOTEROL FUMARATE DIHYDRATE
     Dosage: UNK
  6. LOXAPINE. [Concomitant]
     Active Substance: LOXAPINE
     Dosage: UNK
  7. ZETIA [Suspect]
     Active Substance: EZETIMIBE
     Indication: BLOOD CHOLESTEROL INCREASED
     Dosage: 10 MG, ONCE DAILY
     Route: 048
     Dates: start: 20120510
  8. AMLODIPINE [Concomitant]
     Active Substance: AMLODIPINE BESYLATE
     Dosage: UNK
  9. MELOXICAM. [Concomitant]
     Active Substance: MELOXICAM
     Dosage: UNK
     Route: 048
  10. DIAZEPAM. [Concomitant]
     Active Substance: DIAZEPAM
     Dosage: UNK
     Route: 048
  11. SUCRALFATE. [Concomitant]
     Active Substance: SUCRALFATE
     Dosage: UNK
  12. CLINDAMYCIN. [Suspect]
     Active Substance: CLINDAMYCIN
     Dosage: UNK
  13. CYCLOBENZAPRINE HYDROCHLORIDE. [Concomitant]
     Active Substance: CYCLOBENZAPRINE HYDROCHLORIDE
     Dosage: UNK
  14. METFORMIN [Concomitant]
     Active Substance: METFORMIN HYDROCHLORIDE
     Dosage: UNK
  15. PRINIVIL [Concomitant]
     Active Substance: LISINOPRIL
     Dosage: UNK
     Route: 048
  16. GABAPENTIN. [Concomitant]
     Active Substance: GABAPENTIN
     Dosage: UNK

REACTIONS (5)
  - Cardiac pacemaker insertion [Not Recovered/Not Resolved]
  - Knee operation [Not Recovered/Not Resolved]
  - Intervertebral disc operation [Not Recovered/Not Resolved]
  - Rash [Not Recovered/Not Resolved]
  - Intervertebral disc operation [Not Recovered/Not Resolved]

NARRATIVE: CASE EVENT DATE: 2014
